FAERS Safety Report 6347500-5 (Version None)
Quarter: 2009Q3

REPORT INFORMATION
  Report Type: 
  Country: None (occurrence: None)
  Receive Date: 20090910
  Receipt Date: 20090831
  Transmission Date: 20100115
  Serious: Yes (Other)
  Sender: FDA-Public Use
  Company Number: DE-WYE-G04351009

PATIENT
  Age: 9 Year
  Sex: Male
  Weight: 33.6 kg

DRUGS (4)
  1. BENEFIX [Suspect]
     Indication: FACTOR IX DEFICIENCY
     Route: 042
     Dates: start: 20090202, end: 20090621
  2. BENEFIX [Suspect]
     Route: 042
     Dates: start: 20090622, end: 20090630
  3. BENEFIX [Suspect]
     Route: 042
     Dates: start: 20090701, end: 20090719
  4. BENEFIX [Suspect]
     Route: 042
     Dates: start: 20090720

REACTIONS (1)
  - COAGULATION FACTOR IX LEVEL DECREASED [None]
